FAERS Safety Report 8328343-X (Version None)
Quarter: 2012Q2

REPORT INFORMATION
  Report Type: 
  Country: None (occurrence: None)
  Receive Date: 20120417
  Receipt Date: 20120402
  Transmission Date: 20120825
  Serious: Yes (Other)
  Sender: FDA-Public Use
  Company Number: 2012031853

PATIENT
  Sex: Male

DRUGS (1)
  1. PROVIGEN (IMMUNE GLOBULIN (HUMAN) 10% LIQUID) [Suspect]
     Indication: GUILLAIN-BARRE SYNDROME
     Dosage: 65 G, 2 G/KG IN 2 DAYS)
     Dates: start: 20120321, end: 20120322

REACTIONS (4)
  - MEDICATION ERROR [None]
  - HAEMORRHAGE [None]
  - HAEMATOCRIT DECREASED [None]
  - SPLENIC RUPTURE [None]
